FAERS Safety Report 23889609 (Version 1)
Quarter: 2024Q2

REPORT INFORMATION
  Report Type: Spontaneous
  Country: US (occurrence: None)
  Receive Date: 20240523
  Receipt Date: 20240523
  Transmission Date: 20240716
  Serious: No
  Sender: FDA-Public Use
  Company Number: None

PATIENT

DRUGS (3)
  1. CYCLOBENZAPRINE HYDROCHLORIDE [Suspect]
     Active Substance: CYCLOBENZAPRINE HYDROCHLORIDE
  2. GABAPENTIN [Suspect]
     Active Substance: GABAPENTIN
  3. PRAVASTATIN [Suspect]
     Active Substance: PRAVASTATIN

REACTIONS (4)
  - Neuropathy peripheral [None]
  - Wrong product administered [None]
  - Vomiting [None]
  - Wrong patient received product [None]
